FAERS Safety Report 5730128-5 (Version None)
Quarter: 2008Q2

REPORT INFORMATION
  Report Type: 
  Country: None (occurrence: None)
  Receive Date: 20080502
  Receipt Date: 20080416
  Transmission Date: 20081010
  Serious: Yes (Hospitalization)
  Sender: FDA-Public Use
  Company Number: 230116J08BRA

PATIENT
  Age: 47 Year
  Sex: Male

DRUGS (2)
  1. REBIF [Suspect]
     Dosage: 3 IN 1 WEEKS
     Dates: start: 20050808
  2. PHENOBARBITAL /00023201/ [Concomitant]

REACTIONS (2)
  - ACCIDENT [None]
  - LOWER LIMB FRACTURE [None]
